FAERS Safety Report 22164606 (Version 1)
Quarter: 2023Q2

REPORT INFORMATION
  Report Type: Spontaneous
  Country: US (occurrence: US)
  Receive Date: 20230403
  Receipt Date: 20230403
  Transmission Date: 20230721
  Serious: Yes (Other)
  Sender: FDA-Public Use
  Company Number: US-BEH-2023156828

PATIENT
  Age: 58 Year
  Sex: Male

DRUGS (6)
  1. ANTIHEMOPHILIC FACTOR, HUMAN RECOMBINANT [Suspect]
     Active Substance: ANTIHEMOPHILIC FACTOR, HUMAN RECOMBINANT
     Indication: Factor VIII deficiency
     Dosage: UNK
     Route: 065
  2. ANTIHEMOPHILIC FACTOR, HUMAN RECOMBINANT [Suspect]
     Active Substance: ANTIHEMOPHILIC FACTOR, HUMAN RECOMBINANT
     Dosage: BOLUS
     Route: 065
     Dates: start: 201912
  3. ANTIHEMOPHILIC FACTOR, HUMAN RECOMBINANT [Suspect]
     Active Substance: ANTIHEMOPHILIC FACTOR, HUMAN RECOMBINANT
     Dosage: CONTINUOUS INFUSION
     Route: 065
     Dates: start: 201912
  4. ANTIHEMOPHILIC FACTOR HUMAN [Suspect]
     Active Substance: ANTIHEMOPHILIC FACTOR HUMAN
     Indication: Factor VIII deficiency
     Route: 065
  5. EMICIZUMAB [Suspect]
     Active Substance: EMICIZUMAB
     Indication: Haemorrhage prophylaxis
     Dosage: UNK, QW
     Route: 065
     Dates: start: 201907, end: 201912
  6. ASPIRIN [Concomitant]
     Active Substance: ASPIRIN
     Indication: Thrombosis prophylaxis
     Route: 065

REACTIONS (2)
  - Anti factor VIII antibody positive [Recovered/Resolved]
  - Superficial vein thrombosis [Unknown]

NARRATIVE: CASE EVENT DATE: 20190101
